FAERS Safety Report 4673086-7 (Version None)
Quarter: 2005Q2

REPORT INFORMATION
  Report Type: 
  Country: None (occurrence: None)
  Receive Date: 20050524
  Receipt Date: 20050524
  Transmission Date: 20051028
  Serious: Yes (Other)
  Sender: FDA-Public Use
  Company Number: None

PATIENT
  Age: 20 Year
  Sex: Female
  Weight: 56.6996 kg

DRUGS (1)
  1. HYDROCORTISONE 1% OINTMENT [Suspect]
     Indication: PRURITUS
     Dosage: A TUBE  EVERY DAY TOPICAL
     Route: 061

REACTIONS (2)
  - RASH [None]
  - SKIN DISORDER [None]
